FAERS Safety Report 17435761 (Version 4)
Quarter: 2021Q2

REPORT INFORMATION
  Report Type: Spontaneous
  Country: US (occurrence: US)
  Receive Date: 20200219
  Receipt Date: 20210616
  Transmission Date: 20210716
  Serious: Yes (Other)
  Sender: FDA-Public Use
  Company Number: US-GILEAD-2020-0451434

PATIENT
  Age: 58 Year
  Sex: Male

DRUGS (26)
  1. VIREAD [Suspect]
     Active Substance: TENOFOVIR DISOPROXIL FUMARATE
     Dosage: UNK
     Route: 065
     Dates: start: 20181220, end: 20190729
  2. PEPCID [Concomitant]
     Active Substance: FAMOTIDINE
  3. VIDEX EC [Concomitant]
     Active Substance: DIDANOSINE
  4. ZESTRIL [Concomitant]
     Active Substance: LISINOPRIL
  5. GENVOYA [Concomitant]
     Active Substance: COBICISTAT\ELVITEGRAVIR\EMTRICITABINE\TENOFOVIR ALAFENAMIDE FUMARATE
     Indication: PRODUCT USED FOR UNKNOWN INDICATION
     Dosage: UNK
     Route: 065
  6. LASIX [Concomitant]
     Active Substance: FUROSEMIDE
  7. TYLENOL WITH CODEINE [Concomitant]
     Active Substance: ACETAMINOPHEN\CODEINE PHOSPHATE
  8. HEPARIN [Concomitant]
     Active Substance: HEPARIN SODIUM
  9. NORVIR [Concomitant]
     Active Substance: RITONAVIR
  10. ATORVASTATIN [Concomitant]
     Active Substance: ATORVASTATIN
  11. EPIVIR [Concomitant]
     Active Substance: LAMIVUDINE
  12. NAPROXEN. [Concomitant]
     Active Substance: NAPROXEN
  13. MOTRIN [Concomitant]
     Active Substance: IBUPROFEN
  14. ISENTRESS [Concomitant]
     Active Substance: RALTEGRAVIR POTASSIUM
  15. SUSTIVA [Concomitant]
     Active Substance: EFAVIRENZ
  16. ZIAGEN [Concomitant]
     Active Substance: ABACAVIR SULFATE
  17. VIREAD [Suspect]
     Active Substance: TENOFOVIR DISOPROXIL FUMARATE
     Indication: HIV INFECTION
     Dosage: UNK
     Route: 048
     Dates: start: 2010
  18. PREZISTA [Concomitant]
     Active Substance: DARUNAVIR ETHANOLATE
  19. ATRIPLA [Suspect]
     Active Substance: EFAVIRENZ\EMTRICITABINE\TENOFOVIR DISOPROXIL FUMARATE
     Indication: HIV INFECTION
     Dosage: UNK
     Route: 048
     Dates: end: 201509
  20. SEVELAMER CARBONATE. [Concomitant]
     Active Substance: SEVELAMER CARBONATE
  21. TIVICAY [Concomitant]
     Active Substance: DOLUTEGRAVIR SODIUM
  22. ATRIPLA [Suspect]
     Active Substance: EFAVIRENZ\EMTRICITABINE\TENOFOVIR DISOPROXIL FUMARATE
     Dosage: UNK
     Route: 065
     Dates: start: 20080619, end: 20130821
  23. VELPHORO [Concomitant]
     Active Substance: SUCROFERRIC OXYHYDROXIDE
  24. ALDACTONE [Concomitant]
     Active Substance: SPIRONOLACTONE
  25. PREDNISONE. [Concomitant]
     Active Substance: PREDNISONE
  26. PRAVASTATIN. [Concomitant]
     Active Substance: PRAVASTATIN

REACTIONS (10)
  - Pain [Not Recovered/Not Resolved]
  - End stage renal disease [Not Recovered/Not Resolved]
  - Anxiety [Not Recovered/Not Resolved]
  - Blood creatinine increased [Unknown]
  - Depression [Not Recovered/Not Resolved]
  - Chronic kidney disease [Not Recovered/Not Resolved]
  - Nephrolithiasis [Unknown]
  - Emotional distress [Not Recovered/Not Resolved]
  - Renal failure [Not Recovered/Not Resolved]
  - Economic problem [Not Recovered/Not Resolved]

NARRATIVE: CASE EVENT DATE: 201509
